FAERS Safety Report 6267399-5 (Version None)
Quarter: 2009Q3

REPORT INFORMATION
  Report Type: 
  Country: None (occurrence: None)
  Receive Date: 20090710
  Receipt Date: 20090629
  Transmission Date: 20100115
  Serious: Yes (Death)
  Sender: FDA-Public Use
  Company Number: 8047772

PATIENT
  Age: 63 Year
  Sex: Female

DRUGS (5)
  1. KEPPRA [Suspect]
  2. VIMPAT [Suspect]
     Indication: PARTIAL SEIZURES
     Dates: start: 20090312
  3. CARBAMAZEPINE [Suspect]
     Dates: end: 20090311
  4. CARBAMAZEPINE [Suspect]
     Dates: start: 20090312
  5. TOPIRAMATE [Suspect]

REACTIONS (2)
  - CHRONIC OBSTRUCTIVE PULMONARY DISEASE [None]
  - HYPONATRAEMIA [None]
